FAERS Safety Report 11616195 (Version 1)
Quarter: 2015Q4

REPORT INFORMATION
  Report Type: Spontaneous
  Country: US (occurrence: US)
  Receive Date: 20151009
  Receipt Date: 20151009
  Transmission Date: 20160304
  Serious: No
  Sender: FDA-Public Use
  Company Number: US-BAYER-2015-440152

PATIENT
  Age: 80 Year
  Sex: Female
  Weight: 47.62 kg

DRUGS (3)
  1. CLARITIN [Suspect]
     Active Substance: LORATADINE
     Dosage: UNK
  2. QUETIAPINE [Concomitant]
     Active Substance: QUETIAPINE
     Dosage: UNK
  3. MELOXICAM. [Concomitant]
     Active Substance: MELOXICAM
     Dosage: UNK

REACTIONS (1)
  - Product use issue [None]
